FAERS Safety Report 7623377-2 (Version None)
Quarter: 2011Q3

REPORT INFORMATION
  Report Type: 
  Country: None (occurrence: None)
  Receive Date: 20110720
  Receipt Date: 20110711
  Transmission Date: 20111222
  Serious: Yes (Other)
  Sender: FDA-Public Use
  Company Number: JP-ROCHE-789620

PATIENT
  Age: 64 Year
  Sex: Female

DRUGS (4)
  1. BEVACIZUMAB [Suspect]
     Dosage: DISCONTINUED
     Route: 065
  2. FOLINIC ACID [Suspect]
     Dosage: DISCONTINUED
     Route: 065
  3. FLUOROURACIL [Suspect]
     Dosage: DISCONTINUED
     Route: 065
  4. IRINOTECAN HCL [Suspect]
     Dosage: DISCONTINUED
     Route: 065

REACTIONS (1)
  - INTERSTITIAL LUNG DISEASE [None]
